FAERS Safety Report 9556454 (Version 1)
Quarter: 2013Q3

REPORT INFORMATION
  Report Type: Spontaneous
  Country: US (occurrence: US)
  Receive Date: 20130926
  Receipt Date: 20130926
  Transmission Date: 20140515
  Serious: Yes (Other)
  Sender: FDA-Public Use
  Company Number: US-SUN PHARMACEUTICAL INDUSTRIES LTD-2013SUN04741

PATIENT
  Sex: 0

DRUGS (9)
  1. MIRTAZAPINE 7.5 MG TABLET [Suspect]
     Indication: PRODUCT USED FOR UNKNOWN INDICATION
     Route: 065
  2. KRISTALOSE [Concomitant]
  3. PROMETHAZINE [Concomitant]
  4. CIPROFLOXACIN [Concomitant]
     Dosage: UNK, PRN
  5. OMEGA 3-6-9 COMPLEX [Concomitant]
  6. EQUATE COMPLETE MULTI VITAMIN [Concomitant]
  7. MELATONIN [Concomitant]
  8. EQUATE STOOL SOFTENER [Concomitant]
  9. MILK THISTLE [Concomitant]

REACTIONS (2)
  - Hepatic failure [Unknown]
  - Renal impairment [Unknown]
